FAERS Safety Report 8670966 (Version 2)
Quarter: 2012Q4

REPORT INFORMATION
  Report Type: 
  Country: AU (occurrence: AU)
  Receive Date: 20120718
  Receipt Date: 20120907
  Transmission Date: 20130627
  Serious: Yes (Hospitalization, Other)
  Sender: FDA-Public Use
  Company Number: AU-ASTRAZENECA-2012SE46607

PATIENT
  Age: 25 Year
  Sex: Female

DRUGS (6)
  1. SEROQUEL [Suspect]
     Dosage: OVERDOSED WITH 3000MG
     Route: 048
     Dates: start: 2011
  2. SEROQUEL [Suspect]
     Route: 048
  3. SEROQUEL [Suspect]
     Dosage: 400 MG WITH WINE AND CHAMPAGNE
     Route: 048
     Dates: start: 201206
  4. SEROQUEL [Suspect]
     Route: 048
  5. ALCOHOL [Suspect]
     Route: 065
  6. FLUOXETINE [Concomitant]

REACTIONS (8)
  - Overdose [Unknown]
  - Blood creatinine increased [Unknown]
  - Rash macular [Unknown]
  - Hypoaesthesia [Unknown]
  - Gait disturbance [Unknown]
  - Liver function test abnormal [Unknown]
  - Pyrexia [Unknown]
  - Intentional drug misuse [Unknown]
